FAERS Safety Report 19912360 (Version 2)
Quarter: 2024Q3

REPORT INFORMATION
  Report Type: Spontaneous
  Country: PT (occurrence: PT)
  Receive Date: 20211004
  Receipt Date: 20240823
  Transmission Date: 20241017
  Serious: Yes (Other)
  Sender: AKCEA THERAPEUTICS
  Company Number: PT-AKCEA THERAPEUTICS, INC.-2021IS001719

PATIENT

DRUGS (1)
  1. TEGSEDI [Suspect]
     Active Substance: INOTERSEN SODIUM
     Indication: Hereditary neuropathic amyloidosis
     Dosage: UNK, ONCE EVERY 4 WEEKS
     Route: 058

REACTIONS (6)
  - Ocular hypertension [Unknown]
  - Glaucoma [Unknown]
  - Visual acuity reduced [Unknown]
  - Vitreous opacities [Unknown]
  - Deposit eye [Unknown]
  - Off label use [Unknown]
